FAERS Safety Report 7553398-X (Version None)
Quarter: 2011Q2

REPORT INFORMATION
  Report Type: 
  Country: None (occurrence: None)
  Receive Date: 20110614
  Receipt Date: 20110614
  Transmission Date: 20111010
  Serious: Yes (Life-Threatening)
  Sender: FDA-Public Use
  Company Number: None

PATIENT
  Age: 55 Year
  Sex: Female
  Weight: 76.4 kg

DRUGS (2)
  1. JHP PHARMACEUTICALS-PPD 0.1 ML [Suspect]
  2. TDAP SANDOFI PASTEUR LIMITED [Suspect]

REACTIONS (6)
  - PRURITUS [None]
  - OBSTRUCTIVE AIRWAYS DISORDER [None]
  - ERYTHEMA [None]
  - DRUG HYPERSENSITIVITY [None]
  - LIP OEDEMA [None]
  - ORAL PRURITUS [None]
